FAERS Safety Report 8106721-1 (Version None)
Quarter: 2012Q1

REPORT INFORMATION
  Report Type: 
  Country: None (occurrence: None)
  Receive Date: 20120202
  Receipt Date: 20120121
  Transmission Date: 20120608
  Serious: Yes (Other)
  Sender: FDA-Public Use
  Company Number: DE-UCBSA-050164

PATIENT
  Age: 22 Year
  Sex: Male
  Weight: 70 kg

DRUGS (2)
  1. HEROIN [Suspect]
     Dosage: DOSE UNKNOWN
     Route: 042
  2. KEPPRA [Suspect]
     Dosage: DRUG STRENGTH: 100MG/ML SOLUTION
     Route: 042
     Dates: start: 20120121

REACTIONS (2)
  - SOMNOLENCE [None]
  - ACCIDENTAL OVERDOSE [None]
